FAERS Safety Report 12172534 (Version 5)
Quarter: 2017Q3

REPORT INFORMATION
  Report Type: Spontaneous
  Country: FR (occurrence: FR)
  Receive Date: 20160311
  Receipt Date: 20170911
  Transmission Date: 20171127
  Serious: Yes (Hospitalization, Disabling, Congenital Anomaly)
  Sender: FDA-Public Use
  Company Number: FR-ABBVIE-15P-056-1486569-00

PATIENT
  Sex: Male

DRUGS (1)
  1. DEPAKINE [Suspect]
     Active Substance: VALPROATE SODIUM
     Indication: MATERNAL EXPOSURE TIMING UNSPECIFIED
     Route: 064

REACTIONS (41)
  - Skin infection [Unknown]
  - Speech disorder developmental [Not Recovered/Not Resolved]
  - Scoliosis [Not Recovered/Not Resolved]
  - Coordination abnormal [Not Recovered/Not Resolved]
  - Motor dysfunction [Not Recovered/Not Resolved]
  - Epilepsy [Not Recovered/Not Resolved]
  - Autism spectrum disorder [Unknown]
  - Aggression [Not Recovered/Not Resolved]
  - Speech disorder [Not Recovered/Not Resolved]
  - Intellectual disability [Unknown]
  - Cushingoid [Unknown]
  - Hypertelorism of orbit [Unknown]
  - Dysmorphism [Not Recovered/Not Resolved]
  - Psychotic disorder [Unknown]
  - Ill-defined disorder [Not Recovered/Not Resolved]
  - Hallucination [Unknown]
  - Plagiocephaly [Unknown]
  - Cognitive disorder [Unknown]
  - Disability [Not Recovered/Not Resolved]
  - Bronchitis [Not Recovered/Not Resolved]
  - Otitis media [Not Recovered/Not Resolved]
  - Astigmatism [Not Recovered/Not Resolved]
  - Talipes [Not Recovered/Not Resolved]
  - Balance disorder [Not Recovered/Not Resolved]
  - Delirium [Unknown]
  - Congenital nose malformation [Unknown]
  - Spine malformation [Not Recovered/Not Resolved]
  - Bronchitis [Unknown]
  - Heart disease congenital [Not Recovered/Not Resolved]
  - Psychomotor retardation [Not Recovered/Not Resolved]
  - Emotional disorder [Unknown]
  - Congenital anomaly [Not Recovered/Not Resolved]
  - Abnormal behaviour [Not Recovered/Not Resolved]
  - Supernumerary nipple [Not Recovered/Not Resolved]
  - Hypotonia [Not Recovered/Not Resolved]
  - Foetal anticonvulsant syndrome [Unknown]
  - Microcephaly [Not Recovered/Not Resolved]
  - Atrioventricular block [Not Recovered/Not Resolved]
  - Developmental delay [Unknown]
  - Congenital hair disorder [Unknown]
  - Foetal exposure during pregnancy [Unknown]

NARRATIVE: CASE EVENT DATE: 1998
